FAERS Safety Report 13257314 (Version 1)
Quarter: 2017Q1

REPORT INFORMATION
  Report Type: Report from Study
  Country: IN (occurrence: IN)
  Receive Date: 20170221
  Receipt Date: 20170221
  Transmission Date: 20170428
  Serious: Yes (Death, Other)
  Sender: FDA-Public Use
  Company Number: IN-MYLANLABS-2017M1010393

PATIENT

DRUGS (3)
  1. GLUCOSE [Concomitant]
     Active Substance: DEXTROSE
     Indication: ECLAMPSIA
     Dosage: 20ML 5% GLUCOSE (DEXTROSE) MIXED WITH MAGNESIUM SULFATE
     Route: 065
  2. MAGNESIUM SULFATE. [Suspect]
     Active Substance: MAGNESIUM SULFATE
     Indication: ECLAMPSIA
     Dosage: 4G DILUTED IN 20ML OF 5% DISTILLED WATER OVER 15-20 MINUTES
     Route: 042
  3. MAGNESIUM SULFATE. [Suspect]
     Active Substance: MAGNESIUM SULFATE
     Dosage: 2G DILUTED IN 20ML OF 5% DEXTROSE
     Route: 065

REACTIONS (2)
  - Exposure during pregnancy [Fatal]
  - Respiratory depression [Fatal]
